FAERS Safety Report 17491502 (Version 2)
Quarter: 2020Q1

REPORT INFORMATION
  Report Type: Report from Study
  Country: US (occurrence: US)
  Receive Date: 20200303
  Receipt Date: 20200305
  Transmission Date: 20200409
  Serious: Yes (Hospitalization, Other)
  Sender: FDA-Public Use
  Company Number: US-ACTELION-A-NJ2019-199930

PATIENT
  Sex: Female
  Weight: 76.64 kg

DRUGS (4)
  1. WARFARIN [Concomitant]
     Active Substance: WARFARIN
  2. SILDENAFIL CITRATE. [Concomitant]
     Active Substance: SILDENAFIL CITRATE
  3. VENTAVIS [Suspect]
     Active Substance: ILOPROST
     Indication: PULMONARY ARTERIAL HYPERTENSION
     Dosage: 5 MCG, 6 TO 9 TIMES PER DAY
     Route: 055
  4. TYVASO [Suspect]
     Active Substance: TREPROSTINIL
     Indication: PRODUCT USED FOR UNKNOWN INDICATION
     Route: 065

REACTIONS (12)
  - Fatigue [Unknown]
  - Dizziness [Unknown]
  - Nausea [Unknown]
  - Peripheral swelling [Unknown]
  - Treatment noncompliance [Unknown]
  - Erythema [Unknown]
  - Cardiac operation [Unknown]
  - Adverse event [Unknown]
  - Limb injury [Unknown]
  - Head discomfort [Unknown]
  - Flushing [Unknown]
  - Oedema peripheral [Unknown]
